FAERS Safety Report 22014751 (Version 3)
Quarter: 2023Q1

REPORT INFORMATION
  Report Type: Spontaneous
  Country: CZ (occurrence: CZ)
  Receive Date: 20230221
  Receipt Date: 20230316
  Transmission Date: 20230417
  Serious: Yes (Congenital Anomaly, Other)
  Sender: FDA-Public Use
  Company Number: CZ-002147023-NVSC2023CZ038062

PATIENT
  Sex: Male
  Weight: 9.84 kg

DRUGS (7)
  1. AIMOVIG [Suspect]
     Active Substance: ERENUMAB-AOOE
     Indication: Foetal exposure during pregnancy
     Dosage: MATERNAL DOSE: 140 MG FROM 05 FEB 2021
     Route: 064
  2. AIMOVIG [Suspect]
     Active Substance: ERENUMAB-AOOE
     Dosage: MATERNAL DOSE: UNK FROM 30 MAR 2021
     Route: 064
  3. AIMOVIG [Suspect]
     Active Substance: ERENUMAB-AOOE
     Dosage: MATERNAL DOSE: 140 MG TO 02 APR 2021
     Route: 064
  4. SUMATRIPTAN [Concomitant]
     Active Substance: SUMATRIPTAN
     Indication: Foetal exposure during pregnancy
     Dosage: MATERNAL DOSE: UNKNOWN, PRN
     Route: 064
  5. Paralen [Concomitant]
     Indication: Foetal exposure during pregnancy
     Dosage: MATERNAL DOSE: UNK UNK, PRN
     Route: 064
  6. MAGNESIUM [Concomitant]
     Active Substance: MAGNESIUM
     Indication: Foetal exposure during pregnancy
     Dosage: MATERNAL DOSE: UNK FROM 1999 TO 25 DEC 2021
     Route: 064
  7. VITAMIN D [Concomitant]
     Active Substance: VITAMIN D NOS
     Indication: Foetal exposure during pregnancy
     Dosage: UNK
     Route: 065

REACTIONS (3)
  - Congenital urinary tract obstruction [Unknown]
  - Pneumonia [Unknown]
  - Foetal exposure during pregnancy [Unknown]
